FAERS Safety Report 5560417-9 (Version None)
Quarter: 2007Q4

REPORT INFORMATION
  Report Type: 
  Country: None (occurrence: None)
  Receive Date: 20071214
  Receipt Date: 20071101
  Transmission Date: 20080405
  Serious: No
  Sender: FDA-Public Use
  Company Number: US-ABBOTT-07P-163-0423583-00

PATIENT
  Sex: Female
  Weight: 60.382 kg

DRUGS (3)
  1. HUMIRA [Suspect]
     Indication: RHEUMATOID ARTHRITIS
     Dosage: LOT NUMBER UNAVAILABLE-ALREADY IN SHARP'S CONTAINER
     Route: 058
     Dates: start: 20071016
  2. CELECOXIB [Concomitant]
     Indication: RHEUMATOID ARTHRITIS
  3. HYDROXYCHLOROQUINE SULFATE [Concomitant]
     Indication: RHEUMATOID ARTHRITIS

REACTIONS (1)
  - ACCIDENTAL EXPOSURE [None]
